FAERS Safety Report 7841232-X (Version None)
Quarter: 2011Q4

REPORT INFORMATION
  Report Type: 
  Country: None (occurrence: None)
  Receive Date: 20111025
  Receipt Date: 20111014
  Transmission Date: 20120403
  Serious: Yes (Life-Threatening, Hospitalization, Other)
  Sender: FDA-Public Use
  Company Number: SE-AMGEN-SWESP2011053691

PATIENT
  Sex: Female
  Weight: 50 kg

DRUGS (1)
  1. ENBREL [Suspect]
     Indication: RHEUMATOID ARTHRITIS
     Dosage: UNK
     Dates: start: 20060101, end: 20060101

REACTIONS (5)
  - LONG QT SYNDROME [None]
  - CARDIOMYOPATHY [None]
  - CARDIAC FAILURE [None]
  - VENTRICULAR FIBRILLATION [None]
  - INFECTION [None]
